FAERS Safety Report 26130782 (Version 1)
Quarter: 2025Q4

REPORT INFORMATION
  Report Type: Spontaneous
  Country: EU (occurrence: EU)
  Receive Date: 20251208
  Receipt Date: 20251208
  Transmission Date: 20260117
  Serious: Yes (Hospitalization)
  Sender: COSETTE PHARMACEUTICALS INC
  Company Number: None

PATIENT
  Age: 39 Year
  Sex: Male

DRUGS (6)
  1. AMBIEN [Suspect]
     Active Substance: ZOLPIDEM TARTRATE
     Indication: Agitation
     Route: 048
     Dates: start: 20251030, end: 20251030
  2. AMBIEN [Suspect]
     Active Substance: ZOLPIDEM TARTRATE
     Route: 065
  3. HALCION [Suspect]
     Active Substance: TRIAZOLAM
     Indication: Agitation
     Route: 048
     Dates: start: 20251030, end: 20251030
  4. HALCION [Suspect]
     Active Substance: TRIAZOLAM
     Route: 065
  5. LORMETAZEPAM [Suspect]
     Active Substance: LORMETAZEPAM
     Indication: Agitation
     Route: 048
     Dates: start: 20251030, end: 20251030
  6. LORMETAZEPAM [Suspect]
     Active Substance: LORMETAZEPAM
     Route: 048

REACTIONS (4)
  - Intentional overdose [Unknown]
  - Intentional product misuse [Unknown]
  - Sopor [Not Recovered/Not Resolved]
  - Somnolence [Not Recovered/Not Resolved]

NARRATIVE: CASE EVENT DATE: 20251030
